FAERS Safety Report 7536898-8 (Version None)
Quarter: 2011Q2

REPORT INFORMATION
  Report Type: 
  Country: None (occurrence: None)
  Receive Date: 20110609
  Receipt Date: 20110602
  Transmission Date: 20111010
  Serious: Yes (Other)
  Sender: FDA-Public Use
  Company Number: GB-ROCHE-780565

PATIENT
  Age: 65 Year
  Sex: Male
  Weight: 89 kg

DRUGS (3)
  1. OXALIPLATIN [Concomitant]
  2. FLUOROURACIL [Concomitant]
  3. AVASTIN [Suspect]
     Dosage: DOSE, FORM AND FREQUENCY: NOT PROVIDED
     Route: 042
     Dates: start: 20090415, end: 20110309

REACTIONS (1)
  - PNEUMATOSIS INTESTINALIS [None]
